FAERS Safety Report 20163396 (Version 2)
Quarter: 2021Q4

REPORT INFORMATION
  Report Type: Spontaneous
  Country: US (occurrence: US)
  Receive Date: 20211209
  Receipt Date: 20211228
  Transmission Date: 20220303
  Serious: No
  Sender: FDA-Public Use
  Company Number: US-DENTSPLY PHARMACEUTICAL-2021SCDP000343

PATIENT
  Sex: Female

DRUGS (1)
  1. ORAQIX [Suspect]
     Active Substance: LIDOCAINE\PRILOCAINE
     Indication: Product used for unknown indication
     Dosage: UNK GEL 20PK-COLLAR
     Route: 065

REACTIONS (3)
  - Burning sensation [Unknown]
  - Hyperhidrosis [Unknown]
  - Urticaria [Unknown]
